FAERS Safety Report 9767208 (Version 2)
Quarter: 2014Q4

REPORT INFORMATION
  Report Type: Spontaneous
  Country: US (occurrence: US)
  Receive Date: 20131217
  Receipt Date: 20141217
  Transmission Date: 20150529
  Serious: No
  Sender: FDA-Public Use
  Company Number: US-GLAXOSMITHKLINE-A1043540A

PATIENT
  Sex: Male

DRUGS (16)
  1. BENAZEPRIL [Concomitant]
     Active Substance: BENAZEPRIL\BENAZEPRIL HYDROCHLORIDE
  2. RENVELA [Concomitant]
     Active Substance: SEVELAMER CARBONATE
  3. METOPROLOL [Concomitant]
     Active Substance: METOPROLOL
  4. DIAZEPAM. [Concomitant]
     Active Substance: DIAZEPAM
  5. LORAZEPAM. [Concomitant]
     Active Substance: LORAZEPAM
  6. SYNTHROID [Concomitant]
     Active Substance: LEVOTHYROXINE SODIUM
  7. VALIUM [Concomitant]
     Active Substance: DIAZEPAM
  8. UNKNOWN [Concomitant]
     Active Substance: UNSPECIFIED INGREDIENT
  9. LEVOTHYROXINE [Concomitant]
     Active Substance: LEVOTHYROXINE
  10. PROCHLORPERAZINE. [Concomitant]
     Active Substance: PROCHLORPERAZINE
  11. VOTRIENT [Suspect]
     Active Substance: PAZOPANIB HYDROCHLORIDE
     Indication: RENAL CANCER
     Dosage: 200MG AT 800MG TOTAL DAILY
     Route: 048
     Dates: start: 20130508
  12. DIOVAN [Concomitant]
     Active Substance: VALSARTAN
  13. MINOXIDIL. [Concomitant]
     Active Substance: MINOXIDIL
  14. CALCITRIOL. [Concomitant]
     Active Substance: CALCITRIOL
  15. RENAGEL [Concomitant]
     Active Substance: SEVELAMER HYDROCHLORIDE
  16. PRILOSEC [Concomitant]
     Active Substance: OMEPRAZOLE MAGNESIUM

REACTIONS (4)
  - Swelling face [Unknown]
  - Eyelid oedema [Unknown]
  - Hyperchlorhydria [Unknown]
  - Abdominal distension [Unknown]
